FAERS Safety Report 17292988 (Version 18)
Quarter: 2024Q4

REPORT INFORMATION
  Report Type: Spontaneous
  Country: US (occurrence: US)
  Receive Date: 20200121
  Receipt Date: 20241023
  Transmission Date: 20250114
  Serious: Yes (Other)
  Sender: PFIZER
  Company Number: US-PFIZER INC-2019421384

PATIENT
  Age: 66 Year
  Sex: Female
  Weight: 108.86 kg

DRUGS (4)
  1. BOSULIF [Suspect]
     Active Substance: BOSUTINIB MONOHYDRATE
     Indication: Chronic myeloid leukaemia
     Dosage: 100 MG, DAILY
     Route: 048
     Dates: start: 20190909
  2. BOSULIF [Suspect]
     Active Substance: BOSUTINIB MONOHYDRATE
     Dosage: 300 MG, DAILY (3 TABLETS ONCE DAILY)
     Route: 048
  3. BOSULIF [Suspect]
     Active Substance: BOSUTINIB MONOHYDRATE
     Dosage: 400 MG, 1X/DAY
     Route: 048
  4. BOSULIF [Suspect]
     Active Substance: BOSUTINIB MONOHYDRATE
     Dosage: 3 TABLETS ONCE A DAY, (DO NOT CHEW, BREAK, OR CRUSH, TAKE WITH FOOD)/ 3 TAB(S) ORALLY ONCE A DAY
     Route: 048
     Dates: start: 20230816

REACTIONS (15)
  - Drug dependence [Unknown]
  - Illness [Unknown]
  - Asthenia [Unknown]
  - Diarrhoea [Recovering/Resolving]
  - Chills [Unknown]
  - Abdominal pain upper [Unknown]
  - Malaise [Unknown]
  - Palpitations [Unknown]
  - Drug intolerance [Unknown]
  - Headache [Unknown]
  - Fatigue [Unknown]
  - Limb discomfort [Unknown]
  - Product dose omission issue [Unknown]
  - Product dose omission in error [Unknown]
  - Product prescribing issue [Unknown]

NARRATIVE: CASE EVENT DATE: 20230101
